FAERS Safety Report 8818323 (Version 1)
Quarter: 2012Q4

REPORT INFORMATION
  Report Type: 
  Country: AT (occurrence: AT)
  Receive Date: 20121001
  Receipt Date: 20121001
  Transmission Date: 20130627
  Serious: Yes (Life-Threatening, Hospitalization)
  Sender: FDA-Public Use
  Company Number: AT-ROCHE-1137044

PATIENT
  Sex: Female
  Weight: 60 kg

DRUGS (6)
  1. MABTHERA [Suspect]
     Indication: RHEUMATOID ARTHRITIS
     Route: 042
     Dates: start: 201110, end: 201204
  2. EBETREXAT [Suspect]
     Indication: RHEUMATOID ARTHRITIS
     Route: 065
     Dates: start: 2011
  3. ISOPTIN [Concomitant]
  4. LEXOTANIL [Concomitant]
  5. FORSTEO [Concomitant]
  6. CITALOPRAM [Concomitant]

REACTIONS (1)
  - Pelvic venous thrombosis [Not Recovered/Not Resolved]
